FAERS Safety Report 16941014 (Version 1)
Quarter: 2019Q4

REPORT INFORMATION
  Report Type: Report from Study
  Country: IT (occurrence: IT)
  Receive Date: 20191021
  Receipt Date: 20191021
  Transmission Date: 20200122
  Serious: Yes (Hospitalization, Other)
  Sender: FDA-Public Use
  Company Number: IT-PFIZER INC-2019449444

PATIENT
  Age: 80 Year
  Sex: Male

DRUGS (11)
  1. RANEXA [Concomitant]
     Active Substance: RANOLAZINE
     Dosage: UNK
  2. INSULIN [Suspect]
     Active Substance: INSULIN NOS
     Dosage: 2 DF, TOTAL
     Route: 058
     Dates: start: 20190808, end: 20190808
  3. CARDIOASPIRIN [Concomitant]
     Active Substance: ASPIRIN
     Dosage: 100 MG, UNK
  4. CIPRALEX [Concomitant]
     Active Substance: ESCITALOPRAM OXALATE
     Dosage: UNK
  5. METFORMINA AUROBINDO [Concomitant]
     Dosage: UNK
  6. INEGY [Concomitant]
     Active Substance: EZETIMIBE\SIMVASTATIN
     Dosage: UNK
  7. LANTUS [Concomitant]
     Active Substance: INSULIN GLARGINE
     Dosage: UNK
  8. LANTANON [MIANSERIN HYDROCHLORIDE] [Concomitant]
     Dosage: UNK
  9. TAVOR (LORAZEPAM) [Suspect]
     Active Substance: LORAZEPAM
     Indication: DEPRESSION
     Dosage: 25 MG, TOTAL
     Route: 048
     Dates: start: 20190808, end: 20190808
  10. LOPRESOR [METOPROLOL SUCCINATE] [Concomitant]
     Active Substance: METOPROLOL SUCCINATE
     Dosage: UNK
  11. PLAVIX [Concomitant]
     Active Substance: CLOPIDOGREL BISULFATE
     Dosage: UNK

REACTIONS (6)
  - Suicide attempt [Unknown]
  - Drug abuse [Recovered/Resolved]
  - Hypokinesia [Recovering/Resolving]
  - Bradyphrenia [Recovering/Resolving]
  - Overdose [Recovered/Resolved]
  - Sopor [Recovering/Resolving]

NARRATIVE: CASE EVENT DATE: 20190808
